FAERS Safety Report 10269052 (Version 1)
Quarter: 2014Q2

REPORT INFORMATION
  Report Type: Spontaneous
  Country: US (occurrence: US)
  Receive Date: 20140630
  Receipt Date: 20140630
  Transmission Date: 20141212
  Serious: Yes (Hospitalization)
  Sender: FDA-Public Use
  Company Number: US-GILEAD-2014-0106889

PATIENT
  Sex: Female

DRUGS (1)
  1. LETAIRIS [Suspect]
     Indication: PRODUCT USED FOR UNKNOWN INDICATION
     Dosage: 5 MG, QD
     Route: 065
     Dates: start: 20140418

REACTIONS (9)
  - Bacterial infection [Recovered/Resolved]
  - Dyspnoea [Recovered/Resolved]
  - Cough [Recovering/Resolving]
  - Chest discomfort [Recovering/Resolving]
  - Chest pain [Recovering/Resolving]
  - Pleurisy [Unknown]
  - Fatigue [Recovering/Resolving]
  - Oedema [Recovering/Resolving]
  - Dizziness [Recovering/Resolving]
